FAERS Safety Report 8986985 (Version 1)
Quarter: 2012Q4

REPORT INFORMATION
  Report Type: 
  Country: DK (occurrence: DK)
  Receive Date: 20121227
  Receipt Date: 20121227
  Transmission Date: 20130627
  Serious: Yes (Disabling)
  Sender: FDA-Public Use
  Company Number: DK-GE HEALTHCARE MEDICAL DIAGNOSTICS-OSCN-NO-0604S-0098

PATIENT
  Age: 51 Year
  Sex: Male
  Weight: 95 kg

DRUGS (2)
  1. OMNISCAN [Suspect]
     Indication: COMPLICATIONS OF TRANSPLANTED KIDNEY
     Route: 042
     Dates: start: 20030904, end: 20030904
  2. OMNISCAN [Suspect]
     Indication: DIAGNOSTIC PROCEDURE
     Dosage: second dose 34 mL, cumulative dose for two administrations (2003 and 2005) was 0.39 mmol/kg
     Route: 042
     Dates: start: 20050411, end: 20050411

REACTIONS (11)
  - Nephrogenic systemic fibrosis [Not Recovered/Not Resolved]
  - Joint contracture [Not Recovered/Not Resolved]
  - Psoriasis [Not Recovered/Not Resolved]
  - Pain in extremity [Not Recovered/Not Resolved]
  - Skin tightness [Not Recovered/Not Resolved]
  - Neurological symptom [Not Recovered/Not Resolved]
  - Gait disturbance [Not Recovered/Not Resolved]
  - Penile ulceration [Not Recovered/Not Resolved]
  - Pruritus [Not Recovered/Not Resolved]
  - Restless legs syndrome [Not Recovered/Not Resolved]
  - Wheelchair user [Not Recovered/Not Resolved]
